FAERS Safety Report 12176970 (Version 2)
Quarter: 2016Q1

REPORT INFORMATION
  Report Type: Report from Study
  Country: DK (occurrence: DK)
  Receive Date: 20160314
  Receipt Date: 20160330
  Transmission Date: 20160526
  Serious: Yes (Hospitalization)
  Sender: FDA-Public Use
  Company Number: PHHY2016DK030054

PATIENT
  Age: 12 Year
  Sex: Female
  Weight: 53.6 kg

DRUGS (1)
  1. VOTUBIA [Suspect]
     Active Substance: EVEROLIMUS
     Indication: TUBEROUS SCLEROSIS
     Dosage: 12.5 MG, QD
     Route: 048
     Dates: start: 201201

REACTIONS (4)
  - Pyelonephritis [Recovered/Resolved]
  - Vitamin D decreased [Recovered/Resolved]
  - Pyrexia [Recovered/Resolved]
  - Renal pain [Recovered/Resolved]

NARRATIVE: CASE EVENT DATE: 20140410
